FAERS Safety Report 23194121 (Version 1)
Quarter: 2023Q4

REPORT INFORMATION
  Report Type: Spontaneous
  Country: US (occurrence: None)
  Receive Date: 20231117
  Receipt Date: 20231117
  Transmission Date: 20240110
  Serious: Yes (Hospitalization)
  Sender: FDA-Public Use
  Company Number: US-ROCHE-3456036

PATIENT
  Sex: Male

DRUGS (18)
  1. XOLAIR [Suspect]
     Active Substance: OMALIZUMAB
     Indication: Asthma
     Dosage: STRENGTH:150MG/ML
     Route: 058
  2. XOLAIR [Suspect]
     Active Substance: OMALIZUMAB
  3. XOLAIR [Suspect]
     Active Substance: OMALIZUMAB
  4. LEFLUNOMIDE [Concomitant]
     Active Substance: LEFLUNOMIDE
  5. TRIMETHOBENZAMIDE [Concomitant]
     Active Substance: TRIMETHOBENZAMIDE
  6. DOXYCYCLINE [Concomitant]
     Active Substance: DOXYCYCLINE
  7. MAGNESIUM [Concomitant]
     Active Substance: MAGNESIUM
  8. REMERON [Concomitant]
     Active Substance: MIRTAZAPINE
  9. CLONIDINE [Concomitant]
     Active Substance: CLONIDINE
  10. MIRTAZAPINE [Concomitant]
     Active Substance: MIRTAZAPINE
  11. PROAIR HFA [Concomitant]
     Active Substance: ALBUTEROL SULFATE
  12. FLUCONAZOLE [Concomitant]
     Active Substance: FLUCONAZOLE
  13. AMITRIPTYLINE [Concomitant]
     Active Substance: AMITRIPTYLINE
  14. FENOFIBRATE [Concomitant]
     Active Substance: FENOFIBRATE
  15. ROPINIROLE [Concomitant]
     Active Substance: ROPINIROLE
  16. TIZANIDINE [Concomitant]
     Active Substance: TIZANIDINE
  17. TRAMADOL HCL [Concomitant]
     Active Substance: TRAMADOL HYDROCHLORIDE
  18. ACYCLOVIR [Concomitant]
     Active Substance: ACYCLOVIR

REACTIONS (1)
  - Dyspnoea [Not Recovered/Not Resolved]
